FAERS Safety Report 21462080 (Version 4)
Quarter: 2023Q2

REPORT INFORMATION
  Report Type: Spontaneous
  Country: US (occurrence: None)
  Receive Date: 20221015
  Receipt Date: 20230421
  Transmission Date: 20230722
  Serious: Yes (Other)
  Sender: FDA-Public Use
  Company Number: US-ROCHE-3199607

PATIENT
  Age: 54 Year
  Sex: Male

DRUGS (2)
  1. ROZLYTREK [Suspect]
     Active Substance: ENTRECTINIB
     Indication: Thyroid cancer
     Dosage: ONGOING: YES; DAILY 200 MG
     Route: 048
     Dates: start: 202104
  2. ROZLYTREK [Suspect]
     Active Substance: ENTRECTINIB
     Route: 065

REACTIONS (12)
  - Pelvic infection [Unknown]
  - Skin discolouration [Unknown]
  - Pruritus [Unknown]
  - Pain in extremity [Unknown]
  - Dizziness [Unknown]
  - Arthralgia [Unknown]
  - Arthropathy [Unknown]
  - Muscular weakness [Unknown]
  - Back pain [Recovered/Resolved]
  - Diarrhoea [Unknown]
  - Constipation [Not Recovered/Not Resolved]
  - Peripheral swelling [Not Recovered/Not Resolved]

NARRATIVE: CASE EVENT DATE: 20210401
